FAERS Safety Report 5127018-8 (Version None)
Quarter: 2006Q4

REPORT INFORMATION
  Report Type: 
  Country: None (occurrence: None)
  Receive Date: 20061013
  Receipt Date: 20061003
  Transmission Date: 20070319
  Serious: Yes (Hospitalization)
  Sender: FDA-Public Use
  Company Number: FR-GLAXOSMITHKLINE-B0441242A

PATIENT
  Age: 55 Year
  Sex: Male
  Weight: 46 kg

DRUGS (4)
  1. DEROXAT [Suspect]
     Dosage: 20MG PER DAY
     Route: 048
     Dates: start: 20060513, end: 20060607
  2. TENORMIN [Concomitant]
     Dosage: 50MG PER DAY
     Route: 048
     Dates: end: 20060607
  3. ZOCOR [Concomitant]
     Dosage: 40MG PER DAY
     Route: 048
  4. PLAVIX [Concomitant]
     Dosage: 75MG PER DAY
     Route: 048
     Dates: end: 20060607

REACTIONS (7)
  - BLOOD ALKALINE PHOSPHATASE INCREASED [None]
  - C-REACTIVE PROTEIN INCREASED [None]
  - CHOLESTASIS [None]
  - GAMMA-GLUTAMYLTRANSFERASE INCREASED [None]
  - LEUKOCYTOSIS [None]
  - PYREXIA [None]
  - WEIGHT DECREASED [None]
